FAERS Safety Report 10254741 (Version 1)
Quarter: 2014Q2

REPORT INFORMATION
  Report Type: Spontaneous
  Country: DE (occurrence: DE)
  Receive Date: 20140624
  Receipt Date: 20140624
  Transmission Date: 20141212
  Serious: Yes (Other)
  Sender: FDA-Public Use
  Company Number: DE-JNJFOC-20140613768

PATIENT
  Age: 72 Year
  Sex: Male
  Weight: 83.9 kg

DRUGS (3)
  1. XARELTO [Suspect]
     Indication: CEREBROVASCULAR ACCIDENT PROPHYLAXIS
     Route: 048
  2. XARELTO [Suspect]
     Indication: ATRIAL FIBRILLATION
     Route: 048
  3. NEBIVOLOL [Concomitant]
     Route: 065

REACTIONS (5)
  - Transient ischaemic attack [Unknown]
  - Visual impairment [Unknown]
  - Visual impairment [Unknown]
  - Visual field defect [Unknown]
  - Vision blurred [Unknown]
